FAERS Safety Report 19737036 (Version 1)
Quarter: 2021Q3

REPORT INFORMATION
  Report Type: Report from Study
  Country: US (occurrence: US)
  Receive Date: 20210824
  Receipt Date: 20210824
  Transmission Date: 20211014
  Serious: Yes (Hospitalization, Other)
  Sender: FDA-Public Use
  Company Number: US-ASTELLAS-2021US004111

PATIENT
  Age: 75 Year
  Sex: Male

DRUGS (3)
  1. ENZALUTAMIDE [Suspect]
     Active Substance: ENZALUTAMIDE
     Indication: PROSTATE CANCER
     Route: 048
     Dates: start: 20200304
  2. ENZALUTAMIDE [Suspect]
     Active Substance: ENZALUTAMIDE
     Route: 048
     Dates: start: 20210202
  3. ENZALUTAMIDE [Suspect]
     Active Substance: ENZALUTAMIDE
     Route: 048
     Dates: start: 20210101

REACTIONS (12)
  - Nasopharyngitis [Unknown]
  - Diarrhoea [Unknown]
  - Product availability issue [Unknown]
  - Hyperhidrosis [Unknown]
  - Oropharyngeal discomfort [Unknown]
  - Headache [Unknown]
  - Aphonia [Unknown]
  - Product prescribing issue [Unknown]
  - Pain [Unknown]
  - Hot flush [Unknown]
  - Malignant neoplasm progression [Unknown]
  - Dysphonia [Unknown]

NARRATIVE: CASE EVENT DATE: 20200318
